FAERS Safety Report 13484017 (Version 1)
Quarter: 2017Q2

REPORT INFORMATION
  Report Type: Spontaneous
  Country: US (occurrence: US)
  Receive Date: 20170425
  Receipt Date: 20170425
  Transmission Date: 20170830
  Serious: Yes (Other)
  Sender: FDA-Public Use
  Company Number: None

PATIENT
  Age: 31 Year
  Sex: Male
  Weight: 94.5 kg

DRUGS (1)
  1. ICY HOT MEDICATED NO MESS APPLICATOR [Suspect]
     Active Substance: MENTHOL
     Indication: MYALGIA
     Dosage: OTHER FREQUENCY:FIRST TIME USED;?
     Route: 061
     Dates: start: 20170425, end: 20170425

REACTIONS (3)
  - Chemical burn [None]
  - Application site pain [None]
  - Application site erythema [None]

NARRATIVE: CASE EVENT DATE: 20170425
